FAERS Safety Report 5961296-8 (Version None)
Quarter: 2008Q4

REPORT INFORMATION
  Report Type: 
  Country: None (occurrence: None)
  Receive Date: 20081119
  Receipt Date: 20081111
  Transmission Date: 20090506
  Serious: Yes (Life-Threatening, Hospitalization)
  Sender: FDA-Public Use
  Company Number: 20085410

PATIENT
  Sex: Female

DRUGS (1)
  1. LIORESAL [Suspect]
     Indication: MUSCLE SPASTICITY
     Dosage: 290 MCG, DAILY, INTRATHECAL
     Route: 039

REACTIONS (17)
  - ASTHENIA [None]
  - CELLULITIS [None]
  - DEVICE MIGRATION [None]
  - HALLUCINATION [None]
  - HEADACHE [None]
  - HYPERTONIA [None]
  - IMPLANT SITE EROSION [None]
  - IMPLANT SITE RASH [None]
  - INFECTION [None]
  - INTRACRANIAL HYPOTENSION [None]
  - MEDICAL DEVICE COMPLICATION [None]
  - MENINGITIS [None]
  - NAUSEA [None]
  - PAIN [None]
  - PSYCHOTIC DISORDER [None]
  - PYREXIA [None]
  - RASH PUSTULAR [None]
